FAERS Safety Report 14199776 (Version 1)
Quarter: 2017Q4

REPORT INFORMATION
  Report Type: Other
  Country: CA (occurrence: CA)
  Receive Date: 20171117
  Receipt Date: 20171117
  Transmission Date: 20180321
  Serious: Yes (Other)
  Sender: FDA-Public Use
  Company Number: CA-APOTEX-2017AP021074

PATIENT

DRUGS (2)
  1. ZOLEDRONIC ACID CONCENTRATE [Suspect]
     Active Substance: ZOLEDRONIC ACID
     Indication: OSTEOGENESIS IMPERFECTA
     Dosage: .025 MG/KG, ONCE EVERY 3 MONTHS
     Route: 042
  2. ZOLEDRONIC ACID CONCENTRATE [Suspect]
     Active Substance: ZOLEDRONIC ACID
     Dosage: .012 MG/KG, ONCE EVERY 3 MONTHS
     Route: 042

REACTIONS (2)
  - Product use issue [Unknown]
  - Acute phase reaction [Unknown]
